FAERS Safety Report 23087077 (Version 1)
Quarter: 2023Q4

REPORT INFORMATION
  Report Type: Spontaneous
  Country: US (occurrence: US)
  Receive Date: 20231020
  Receipt Date: 20231020
  Transmission Date: 20240109
  Serious: No
  Sender: FDA-Public Use
  Company Number: US-ViiV Healthcare Limited-102115

PATIENT
  Sex: Male

DRUGS (2)
  1. RILPIVIRINE [Suspect]
     Active Substance: RILPIVIRINE
     Indication: Product used for unknown indication
     Dosage: UNK UNK, Q2M, 600MG/900MG
     Route: 065
     Dates: start: 20221005
  2. CABOTEGRAVIR [Suspect]
     Active Substance: CABOTEGRAVIR
     Indication: Product used for unknown indication
     Dosage: UNK UNK, Q2M, 600MG/900MG
     Route: 065
     Dates: start: 20221005

REACTIONS (3)
  - Pain [Unknown]
  - Chills [Unknown]
  - Pyrexia [Unknown]
